FAERS Safety Report 19685057 (Version 1)
Quarter: 2021Q3

REPORT INFORMATION
  Report Type: Spontaneous
  Country: US (occurrence: US)
  Receive Date: 20210811
  Receipt Date: 20210811
  Transmission Date: 20211014
  Serious: Yes (Hospitalization)
  Sender: FDA-Public Use
  Company Number: US-BAYER-2021-191291

PATIENT
  Age: 42 Year
  Sex: Male

DRUGS (3)
  1. ASPIRIN (PAIN AND FEVER) [Suspect]
     Active Substance: ASPIRIN
  2. DIPYRIDAMOLE. [Suspect]
     Active Substance: DIPYRIDAMOLE
  3. WARFARIN [Suspect]
     Active Substance: WARFARIN

REACTIONS (2)
  - Labelled drug-drug interaction medication error [None]
  - Cerebral haemorrhage [None]
